FAERS Safety Report 5628407-5 (Version None)
Quarter: 2008Q1

REPORT INFORMATION
  Report Type: 
  Country: None (occurrence: None)
  Receive Date: 20080215
  Receipt Date: 20080204
  Transmission Date: 20080703
  Serious: Yes (Other)
  Sender: FDA-Public Use
  Company Number: SE-PFIZER INC-2008011575

PATIENT
  Age: 68 Year
  Sex: Male

DRUGS (4)
  1. NEURONTIN [Suspect]
     Indication: NEURALGIA
     Dosage: DAILY DOSE:700MG
     Route: 048
  2. LEVOTHYROXINE SODIUM [Suspect]
  3. KETOGAN [Suspect]
  4. OXYCONTIN [Suspect]

REACTIONS (23)
  - ABASIA [None]
  - ACTIVITIES OF DAILY LIVING IMPAIRED [None]
  - AMNESIA [None]
  - ANOREXIA [None]
  - APATHY [None]
  - COORDINATION ABNORMAL [None]
  - DEPRESSION [None]
  - DIZZINESS [None]
  - DRUG ADMINISTRATION ERROR [None]
  - DRUG INEFFECTIVE [None]
  - DRUG TOXICITY [None]
  - DYSPNOEA [None]
  - ERECTILE DYSFUNCTION [None]
  - FATIGUE [None]
  - GAIT DISTURBANCE [None]
  - HYPOACUSIS [None]
  - IRRITABILITY [None]
  - MUSCLE SPASMS [None]
  - MUSCLE TWITCHING [None]
  - POOR PERSONAL HYGIENE [None]
  - SPEECH DISORDER [None]
  - SWELLING [None]
  - WEIGHT DECREASED [None]
